FAERS Safety Report 7988210-8 (Version None)
Quarter: 2011Q4

REPORT INFORMATION
  Report Type: 
  Country: None (occurrence: None)
  Receive Date: 20111216
  Receipt Date: 20101228
  Transmission Date: 20120403
  Serious: Yes (Other)
  Sender: FDA-Public Use
  Company Number: US-BRISTOL-MYERS SQUIBB COMPANY-15456585

PATIENT

DRUGS (1)
  1. ABILIFY [Suspect]

REACTIONS (4)
  - CONSTIPATION [None]
  - RESTLESSNESS [None]
  - DEPRESSION [None]
  - INSOMNIA [None]
